FAERS Safety Report 15048084 (Version 1)
Quarter: 2018Q2

REPORT INFORMATION
  Report Type: Report from Study
  Country: GB (occurrence: GB)
  Receive Date: 20180622
  Receipt Date: 20180622
  Transmission Date: 20180711
  Serious: Yes (Other)
  Sender: FDA-Public Use
  Company Number: GB-ROCHE-1714531

PATIENT
  Sex: Male

DRUGS (2)
  1. ESBRIET [Suspect]
     Active Substance: PIRFENIDONE
     Indication: IDIOPATHIC PULMONARY FIBROSIS
     Route: 065
     Dates: start: 201602
  2. ESBRIET [Suspect]
     Active Substance: PIRFENIDONE
     Route: 065
     Dates: start: 20160124

REACTIONS (13)
  - Renal impairment [Unknown]
  - Photosensitivity reaction [Unknown]
  - Gastrooesophageal reflux disease [Unknown]
  - Pain of skin [Not Recovered/Not Resolved]
  - Hepatic function abnormal [Unknown]
  - Pruritus [Recovering/Resolving]
  - Fatigue [Unknown]
  - Rash [Unknown]
  - Sunburn [Unknown]
  - Cough [Recovering/Resolving]
  - Musculoskeletal pain [Unknown]
  - Blood test abnormal [Unknown]
  - Rash macular [Recovering/Resolving]

NARRATIVE: CASE EVENT DATE: 20160511
